FAERS Safety Report 5365393-X (Version None)
Quarter: 2007Q2

REPORT INFORMATION
  Report Type: 
  Country: None (occurrence: None)
  Receive Date: 20070621
  Receipt Date: 20070612
  Transmission Date: 20071010
  Serious: No
  Sender: FDA-Public Use
  Company Number: FR-ELI_LILLY_AND_COMPANY-FR200706003119

PATIENT
  Age: 68 Year
  Sex: Male

DRUGS (4)
  1. CIALIS [Suspect]
     Dosage: 20 UG, UNKNOWN
     Route: 048
     Dates: start: 20070315, end: 20070612
  2. XATRAL [Concomitant]
  3. RIVOTRIL [Concomitant]
  4. XALATAN [Concomitant]

REACTIONS (4)
  - EYE DISORDER [None]
  - EYELID OEDEMA [None]
  - OCULAR HYPERAEMIA [None]
  - VISION BLURRED [None]
